FAERS Safety Report 5162036-5 (Version None)
Quarter: 2006Q4

REPORT INFORMATION
  Report Type: 
  Country: None (occurrence: None)
  Receive Date: 20061121
  Receipt Date: 20061110
  Transmission Date: 20070319
  Serious: Yes (Hospitalization)
  Sender: FDA-Public Use
  Company Number: PAR_1098_2006

PATIENT
  Age: 51 Year
  Sex: Male

DRUGS (9)
  1. ISOPTIN [Suspect]
     Indication: CLUSTER HEADACHE
     Dosage: 240 MG PO
     Route: 048
     Dates: start: 20060516, end: 20060517
  2. BELOC ZOK [Suspect]
     Indication: CORONARY ARTERY ANEURYSM
     Dosage: 50 MG QDAY PO
     Route: 048
     Dates: start: 20060506, end: 20060517
  3. LISITRIL [Concomitant]
  4. CLOPIDOGREL BISULFATE [Concomitant]
  5. SIMCORA [Concomitant]
  6. LITHIUM CARBONATE [Concomitant]
  7. VALPROATE SODIUM [Concomitant]
  8. NICOTINE [Concomitant]
  9. SUMATRIPTAN SUCCINATE [Concomitant]

REACTIONS (12)
  - CARDIOVASCULAR DISORDER [None]
  - DISTURBANCE IN ATTENTION [None]
  - DRUG INTERACTION [None]
  - DYSPNOEA EXERTIONAL [None]
  - FATIGUE [None]
  - HYPERKALAEMIA [None]
  - HYPOTENSION [None]
  - NAUSEA [None]
  - NODAL ARRHYTHMIA [None]
  - RENAL FAILURE ACUTE [None]
  - VERTIGO [None]
  - VOMITING [None]
